FAERS Safety Report 15220549 (Version 1)
Quarter: 2018Q3

REPORT INFORMATION
  Report Type: Spontaneous
  Country: IT (occurrence: IT)
  Receive Date: 20180731
  Receipt Date: 20180731
  Transmission Date: 20181010
  Serious: Yes (Other)
  Sender: FDA-Public Use
  Company Number: IT-MYLANLABS-2018M1055083

PATIENT
  Age: 15 Year
  Sex: Female

DRUGS (14)
  1. MITOXANTRONE [Suspect]
     Active Substance: MITOXANTRONE HYDROCHLORIDE
     Indication: ACUTE PROMYELOCYTIC LEUKAEMIA
     Dosage: 10 MG/M2, DAILY FOR 5 DAYS (COURSE 2)
     Route: 042
  2. MITOXANTRONE [Suspect]
     Active Substance: MITOXANTRONE HYDROCHLORIDE
     Indication: PRODUCT USED FOR UNKNOWN INDICATION
     Dosage: UNK (INTERMEDIATE DOSE)
  3. IDARUBICIN [Suspect]
     Active Substance: IDARUBICIN
     Dosage: 12 MG/M2, DAILY (DAY 1)
     Route: 042
  4. METHOTREXATE. [Concomitant]
     Active Substance: METHOTREXATE
     Dosage: UNK
  5. THIOGUANINE [Concomitant]
     Active Substance: THIOGUANINE
     Indication: ACUTE PROMYELOCYTIC LEUKAEMIA
     Dosage: 6?THIOGUANINE, 70 MG/M2, 3X/DAY (FOR 5 DAYS, DAY1 ?5)
  6. IDARUBICIN [Suspect]
     Active Substance: IDARUBICIN
     Dosage: 5 MG/M2, DAILY (COURSE 1)
     Route: 042
  7. ETOPOSIDE. [Suspect]
     Active Substance: ETOPOSIDE
     Indication: PRODUCT USED FOR UNKNOWN INDICATION
     Dosage: UNK (INTERMEDIATE DOSE)
  8. METHOTREXATE. [Concomitant]
     Active Substance: METHOTREXATE
     Indication: ACUTE PROMYELOCYTIC LEUKAEMIA
     Dosage: 0.25 MG/KG, QW
     Route: 030
     Dates: start: 199005, end: 199205
  9. CYTOSINE ARABINOSIDE [Concomitant]
     Active Substance: CYTARABINE
     Indication: ACUTE PROMYELOCYTIC LEUKAEMIA
     Dosage: UNK UNK, QD
     Route: 042
  10. CYTOSINE ARABINOSIDE [Concomitant]
     Active Substance: CYTARABINE
     Dosage: 150 MG/M2, 3X/DAY (FOR 5 DAYS, DAY 1?5)
     Route: 058
  11. ETOPOSIDE. [Suspect]
     Active Substance: ETOPOSIDE
     Indication: ACUTE PROMYELOCYTIC LEUKAEMIA
     Dosage: 100 MG/M2, DAILY FOR 5 DAYS (COURSE 2)
     Route: 042
  12. CYTOSINE ARABINOSIDE [Concomitant]
     Active Substance: CYTARABINE
     Dosage: UNK (INTERMEDIATE DOSE)
  13. 6?MERCAPTOPURINE MONOHYDRATE [Concomitant]
     Active Substance: MERCAPTOPURINE
     Indication: ACUTE PROMYELOCYTIC LEUKAEMIA
     Dosage: 1 MG/KG, QD
     Route: 048
     Dates: start: 199005, end: 199205
  14. IDARUBICIN [Suspect]
     Active Substance: IDARUBICIN
     Indication: ACUTE PROMYELOCYTIC LEUKAEMIA
     Dosage: 10 MG/M2, DAILY(SINGLE INDUCTION) FOR 6 DAYS

REACTIONS (2)
  - Acute myelomonocytic leukaemia [Recovered/Resolved]
  - Second primary malignancy [Recovered/Resolved]
